FAERS Safety Report 6663791-5 (Version None)
Quarter: 2010Q2

REPORT INFORMATION
  Report Type: 
  Country: None (occurrence: None)
  Receive Date: 20100401
  Receipt Date: 20100318
  Transmission Date: 20101027
  Serious: Yes (Other)
  Sender: FDA-Public Use
  Company Number: CA-GENENTECH-282582

PATIENT
  Sex: Female
  Weight: 76 kg

DRUGS (9)
  1. OMALIZUMAB [Suspect]
     Indication: ASTHMA
     Dosage: 150 UNK, ^Q4^
     Route: 058
     Dates: start: 20090106
  2. OMALIZUMAB [Suspect]
     Dosage: 150 MG, 1/MONTH
     Route: 058
     Dates: start: 20100318
  3. ADVAIR DISKUS 100/50 [Concomitant]
     Indication: DRUG USE FOR UNKNOWN INDICATION
  4. SPIRIVA [Concomitant]
     Indication: DRUG USE FOR UNKNOWN INDICATION
  5. VENTOLIN [Concomitant]
     Indication: DRUG USE FOR UNKNOWN INDICATION
  6. SINGULAIR [Concomitant]
     Indication: DRUG USE FOR UNKNOWN INDICATION
  7. NEXIUM [Concomitant]
     Indication: DRUG USE FOR UNKNOWN INDICATION
  8. PREDNISONE [Concomitant]
     Indication: DRUG USE FOR UNKNOWN INDICATION
  9. LEVAQUIN [Concomitant]
     Indication: DRUG USE FOR UNKNOWN INDICATION

REACTIONS (5)
  - ASTHMA [None]
  - BODY TEMPERATURE DECREASED [None]
  - DYSPNOEA EXERTIONAL [None]
  - HIATUS HERNIA [None]
  - PRODUCTIVE COUGH [None]
